FAERS Safety Report 5205896-1 (Version None)
Quarter: 2006Q4

REPORT INFORMATION
  Report Type: 
  Country: None (occurrence: None)
  Receive Date: 20061027
  Receipt Date: 20060912
  Transmission Date: 20070319
  Serious: No
  Sender: FDA-Public Use
  Company Number: 012497

PATIENT
  Age: 63 Year
  Sex: Male

DRUGS (2)
  1. PRIALT [Suspect]
     Indication: SPINAL FUSION ACQUIRED
     Dosage: 0.33 UG, ONCE/HOUR, INTRATHECAL
     Route: 037
     Dates: start: 20060807
  2. SUBOXONE (BUPRENORPHINE, NALOXONE) [Concomitant]

REACTIONS (5)
  - HALLUCINATION, AUDITORY [None]
  - HALLUCINATION, VISUAL [None]
  - ORAL SURGERY [None]
  - PARAESTHESIA ORAL [None]
  - POSTOPERATIVE WOUND INFECTION [None]
